FAERS Safety Report 8306128-8 (Version None)
Quarter: 2012Q2

REPORT INFORMATION
  Report Type: 
  Country: None (occurrence: None)
  Receive Date: 20120423
  Receipt Date: 20120413
  Transmission Date: 20120825
  Serious: Yes (Death, Hospitalization)
  Sender: FDA-Public Use
  Company Number: GB-ROCHE-GNE268899

PATIENT
  Sex: Female

DRUGS (4)
  1. LUCENTIS [Suspect]
     Indication: AGE-RELATED MACULAR DEGENERATION
     Dosage: 0.5 MG, UNK
     Route: 050
     Dates: start: 20080525
  2. LUCENTIS [Suspect]
     Dosage: 0.5 MG, UNK
     Route: 050
     Dates: start: 20080707
  3. LUCENTIS [Suspect]
     Dosage: 0.5 MG, UNK
     Route: 050
     Dates: start: 20080812
  4. LUCENTIS [Suspect]
     Dosage: 0.5 MG, UNK
     Route: 050
     Dates: start: 20080917

REACTIONS (4)
  - DEATH [None]
  - FOREIGN BODY SENSATION IN EYES [None]
  - PERIPHERAL ISCHAEMIA [None]
  - GENERAL PHYSICAL HEALTH DETERIORATION [None]
